FAERS Safety Report 5859138-4 (Version None)
Quarter: 2008Q3

REPORT INFORMATION
  Report Type: 
  Country: None (occurrence: None)
  Receive Date: 20080825
  Receipt Date: 20080811
  Transmission Date: 20090109
  Serious: Yes (Life-Threatening, Hospitalization, Disabling)
  Sender: FDA-Public Use
  Company Number: JP-1166588

PATIENT
  Age: 79 Year
  Sex: Female

DRUGS (1)
  1. FLUORESCITE [Suspect]
     Indication: ANGIOGRAM RETINA
     Dosage: 2ML INTRAVENOUS BOLUS
     Route: 040
     Dates: start: 20080624, end: 20080624

REACTIONS (12)
  - ACUTE RESPIRATORY DISTRESS SYNDROME [None]
  - CARDIO-RESPIRATORY ARREST [None]
  - CYANOSIS [None]
  - FEELING ABNORMAL [None]
  - HAEMATOCHEZIA [None]
  - HEPATIC ENZYME INCREASED [None]
  - HYPOXIC ENCEPHALOPATHY [None]
  - INCREASED BRONCHIAL SECRETION [None]
  - LOSS OF CONSCIOUSNESS [None]
  - MELAENA [None]
  - PULMONARY OEDEMA [None]
  - SHOCK [None]
